FAERS Safety Report 17727061 (Version 2)
Quarter: 2020Q2

REPORT INFORMATION
  Report Type: Spontaneous
  Country: US (occurrence: US)
  Receive Date: 20200430
  Receipt Date: 20200609
  Transmission Date: 20200714
  Serious: No
  Sender: FDA-Public Use
  Company Number: US-ASTRAZENECA-2020SE46889

PATIENT
  Sex: Female
  Weight: 128.4 kg

DRUGS (1)
  1. BYDUREON BCISE [Suspect]
     Active Substance: EXENATIDE
     Indication: TYPE 2 DIABETES MELLITUS
     Route: 058
     Dates: start: 2018

REACTIONS (5)
  - Intentional product misuse [Unknown]
  - Amnesia [Not Recovered/Not Resolved]
  - Injection site pain [Unknown]
  - Device leakage [Unknown]
  - Incorrect dose administered [Not Recovered/Not Resolved]
